FAERS Safety Report 6756652-4 (Version None)
Quarter: 2010Q2

REPORT INFORMATION
  Report Type: 
  Country: None (occurrence: None)
  Receive Date: 20100604
  Receipt Date: 20100601
  Transmission Date: 20101027
  Serious: Yes (Hospitalization, Disabling, Other)
  Sender: FDA-Public Use
  Company Number: US-MERCK-0909USA00249

PATIENT
  Age: 63 Year
  Sex: Female
  Weight: 60 kg

DRUGS (14)
  1. FOSAMAX [Suspect]
     Indication: OSTEOPOROSIS
     Route: 048
     Dates: start: 20010501, end: 20090501
  2. FOSAMAX [Suspect]
     Route: 048
     Dates: start: 19990801, end: 20020101
  3. FOSAMAX [Suspect]
     Route: 048
     Dates: start: 19970101
  4. FOSAMAX [Suspect]
     Indication: OSTEOPENIA
     Route: 048
     Dates: start: 19990801, end: 20020101
  5. FOSAMAX [Suspect]
     Route: 048
     Dates: start: 19970101
  6. FOSAMAX [Suspect]
     Route: 048
     Dates: start: 20010501, end: 20090501
  7. VICODIN [Concomitant]
     Route: 065
  8. ANALGESIC (UNSPECIFIED) [Concomitant]
     Route: 065
  9. ASPIRIN [Concomitant]
     Route: 065
  10. CALCIUM (UNSPECIFIED) [Concomitant]
     Indication: OSTEOPENIA
     Route: 065
     Dates: start: 20000101
  11. ADVIL LIQUI-GELS [Concomitant]
     Route: 065
  12. IRON (UNSPECIFIED) [Concomitant]
     Route: 065
  13. OMEGA-3 MARINE TRIGLYCERIDES [Concomitant]
     Route: 065
  14. VITAMINS (UNSPECIFIED) [Concomitant]
     Route: 065

REACTIONS (19)
  - ANAEMIA HAEMOLYTIC AUTOIMMUNE [None]
  - CHEST INJURY [None]
  - EXOSTOSIS [None]
  - FALL [None]
  - FEMUR FRACTURE [None]
  - FOOT FRACTURE [None]
  - HAND FRACTURE [None]
  - HEAD INJURY [None]
  - HYPERGAMMAGLOBULINAEMIA BENIGN MONOCLONAL [None]
  - LOW TURNOVER OSTEOPATHY [None]
  - NEPHROLITHIASIS [None]
  - OSTEOARTHRITIS [None]
  - RIB FRACTURE [None]
  - ROAD TRAFFIC ACCIDENT [None]
  - SEASONAL ALLERGY [None]
  - SKIN LACERATION [None]
  - SPINAL COLUMN STENOSIS [None]
  - SPINAL FRACTURE [None]
  - STRESS FRACTURE [None]
